FAERS Safety Report 6967933-3 (Version None)
Quarter: 2010Q3

REPORT INFORMATION
  Report Type: 
  Country: None (occurrence: None)
  Receive Date: 20100907
  Receipt Date: 20100826
  Transmission Date: 20110219
  Serious: Yes (Other)
  Sender: FDA-Public Use
  Company Number: US-BAYER-201031786NA

PATIENT
  Sex: Female

DRUGS (1)
  1. BETAPACE [Suspect]
     Indication: HEART RATE ABNORMAL

REACTIONS (2)
  - EXTRASYSTOLES [None]
  - PALPITATIONS [None]
